FAERS Safety Report 9751008 (Version 2)
Quarter: 2013Q4

REPORT INFORMATION
  Report Type: Spontaneous
  Country: US (occurrence: US)
  Receive Date: 20131212
  Receipt Date: 20131212
  Transmission Date: 20140711
  Serious: Yes (Other)
  Sender: FDA-Public Use
  Company Number: US-TEVA-396665USA

PATIENT
  Sex: Female
  Weight: 41.77 kg

DRUGS (6)
  1. PARAGARD 380A [Suspect]
     Indication: CONTRACEPTION
     Route: 015
     Dates: start: 200007, end: 20101206
  2. METHOTREXATE [Concomitant]
  3. PREDNISONE [Concomitant]
     Indication: COLITIS ULCERATIVE
  4. REMICADE [Concomitant]
  5. SKIN PATCH [Concomitant]
  6. ANTIBIOTICS [Concomitant]

REACTIONS (1)
  - Embedded device [Recovered/Resolved]
